FAERS Safety Report 12659530 (Version 1)
Quarter: 2016Q3

REPORT INFORMATION
  Report Type: Spontaneous
  Country: CN (occurrence: CN)
  Receive Date: 20160817
  Receipt Date: 20160817
  Transmission Date: 20161109
  Serious: Yes (Death)
  Sender: FDA-Public Use
  Company Number: CN-JNJFOC-20160806292

PATIENT
  Sex: Male

DRUGS (1)
  1. SPORANOX [Suspect]
     Active Substance: ITRACONAZOLE
     Indication: DERMATOPHYTOSIS OF NAIL
     Dosage: STOSSTHERAPY (ONE WEEK DRUG-ON WITH THREE WEEKS DRUG-OFF) 100MG*14
     Route: 065
     Dates: start: 1995

REACTIONS (3)
  - Death [Fatal]
  - Incorrect drug administration duration [Unknown]
  - Off label use [Unknown]
